FAERS Safety Report 18169704 (Version 1)
Quarter: 2020Q3

REPORT INFORMATION
  Report Type: Spontaneous
  Country: US (occurrence: US)
  Receive Date: 20200819
  Receipt Date: 20200819
  Transmission Date: 20201103
  Serious: Yes (Hospitalization)
  Sender: FDA-Public Use
  Company Number: None

PATIENT
  Sex: Female
  Weight: 81.2 kg

DRUGS (2)
  1. VINCRISTINE SULFATE. [Concomitant]
     Active Substance: VINCRISTINE SULFATE
  2. METHOTREXATE (740) [Suspect]
     Active Substance: METHOTREXATE

REACTIONS (7)
  - Transaminases increased [None]
  - Hyperbilirubinaemia [None]
  - Stomatitis [None]
  - Bilirubin conjugated increased [None]
  - Obstruction [None]
  - Haptoglobin decreased [None]
  - Blood bilirubin unconjugated increased [None]

NARRATIVE: CASE EVENT DATE: 20200810
